FAERS Safety Report 7407205-6 (Version None)
Quarter: 2011Q2

REPORT INFORMATION
  Report Type: 
  Country: None (occurrence: None)
  Receive Date: 20110411
  Receipt Date: 20110324
  Transmission Date: 20111010
  Serious: No
  Sender: FDA-Public Use
  Company Number: US-ROXANE LABORATORIES, INC.-2011-RO-00467RO

PATIENT
  Sex: Female

DRUGS (1)
  1. AZATHIOPRINE [Suspect]

REACTIONS (1)
  - CHROMATURIA [None]
